FAERS Safety Report 7300634-0 (Version None)
Quarter: 2011Q1

REPORT INFORMATION
  Report Type: 
  Country: None (occurrence: None)
  Receive Date: 20110218
  Receipt Date: 20110203
  Transmission Date: 20110831
  Serious: No
  Sender: FDA-Public Use
  Company Number: 2009BI027582

PATIENT
  Age: 45 Year
  Sex: Female

DRUGS (2)
  1. TYSABRI [Suspect]
     Indication: MULTIPLE SCLEROSIS
     Route: 042
     Dates: start: 20090512, end: 20090804
  2. TYSABRI [Suspect]
     Route: 042
     Dates: start: 20110125

REACTIONS (5)
  - INFUSION SITE PAIN [None]
  - COORDINATION ABNORMAL [None]
  - HYPERACUSIS [None]
  - GAIT DISTURBANCE [None]
  - DRUG INEFFECTIVE [None]
